FAERS Safety Report 15565599 (Version 1)
Quarter: 2018Q4

REPORT INFORMATION
  Report Type: Spontaneous
  Country: US (occurrence: US)
  Receive Date: 20181025
  Receipt Date: 20181025
  Transmission Date: 20190205
  Serious: Yes (Other)
  Sender: FDA-Public Use
  Company Number: None

PATIENT
  Age: 75 Year
  Sex: Male
  Weight: 101.15 kg

DRUGS (2)
  1. CIPRO [Suspect]
     Active Substance: CIPROFLOXACIN HYDROCHLORIDE
     Indication: OSTEOMYELITIS
     Dosage: ?          OTHER FREQUENCY:2 X DAY;?
     Route: 048
     Dates: start: 20170801, end: 20170930
  2. CIPRO [Suspect]
     Active Substance: CIPROFLOXACIN HYDROCHLORIDE
     Indication: LOCALISED INFECTION
     Dosage: ?          OTHER FREQUENCY:2 X DAY;?
     Route: 048
     Dates: start: 20170801, end: 20170930

REACTIONS (3)
  - Ligament sprain [None]
  - Ligament injury [None]
  - Joint swelling [None]

NARRATIVE: CASE EVENT DATE: 20180903
